FAERS Safety Report 4741473-4 (Version None)
Quarter: 2005Q3

REPORT INFORMATION
  Report Type: 
  Country: None (occurrence: None)
  Receive Date: 20050808
  Receipt Date: 20050722
  Transmission Date: 20060218
  Serious: Yes (Hospitalization)
  Sender: FDA-Public Use
  Company Number: 11934

PATIENT
  Age: 23 Year
  Sex: Female

DRUGS (4)
  1. DOXORUBICIN HCL [Suspect]
     Indication: MALIGNANT LYMPHOMA UNCLASSIFIABLE HIGH GRADE
     Dosage: 420 MG TOTAL, IV
     Route: 042
  2. VINCRISTINE [Suspect]
     Indication: MALIGNANT LYMPHOMA UNCLASSIFIABLE HIGH GRADE
     Dosage: 12 MG TOTAL, IV
     Route: 042
  3. CYCLOPHOSPHAMIDE [Suspect]
     Indication: MALIGNANT LYMPHOMA UNCLASSIFIABLE HIGH GRADE
     Dosage: 6000 MG TOTAL, IV
     Route: 042
  4. PREDNISONE [Suspect]
     Indication: MALIGNANT LYMPHOMA UNCLASSIFIABLE HIGH GRADE
     Dosage: 500 MG TOTAL, PO
     Route: 048

REACTIONS (24)
  - ACCIDENTAL OVERDOSE [None]
  - AUTONOMIC NEUROPATHY [None]
  - BONE MARROW DEPRESSION [None]
  - DIARRHOEA [None]
  - HAEMATOCHEZIA [None]
  - HAEMOGLOBIN DECREASED [None]
  - HYPOAESTHESIA [None]
  - HYPOREFLEXIA [None]
  - ILEUS PARALYTIC [None]
  - INAPPROPRIATE ANTIDIURETIC HORMONE SECRETION [None]
  - LYMPHOMA [None]
  - MELAENA [None]
  - METASTASES TO MENINGES [None]
  - NEUROGENIC BLADDER [None]
  - NEUROPATHY PERIPHERAL [None]
  - NUCLEAR MAGNETIC RESONANCE IMAGING BRAIN ABNORMAL [None]
  - PANCYTOPENIA [None]
  - PLATELET COUNT DECREASED [None]
  - PRESCRIBED OVERDOSE [None]
  - PURPURA [None]
  - PYREXIA [None]
  - UNRESPONSIVE TO PAIN STIMULI [None]
  - URINARY INCONTINENCE [None]
  - VISION BLURRED [None]
